FAERS Safety Report 7164169-0 (Version None)
Quarter: 2010Q4

REPORT INFORMATION
  Report Type: 
  Country: None (occurrence: None)
  Receive Date: 20101215
  Receipt Date: 20101207
  Transmission Date: 20110411
  Serious: Yes (Other)
  Sender: FDA-Public Use
  Company Number: DE-ABBOTT-10P-062-0688165-00

PATIENT
  Age: 94 Year
  Sex: Male
  Weight: 83 kg

DRUGS (1)
  1. LUPRON DEPOT [Suspect]
     Indication: PROSTATE CANCER
     Route: 058
     Dates: start: 20100511

REACTIONS (1)
  - GENERAL PHYSICAL HEALTH DETERIORATION [None]
